FAERS Safety Report 8430645 (Version 4)
Quarter: 2015Q1

REPORT INFORMATION
  Report Type: Spontaneous
  Country: AU (occurrence: AU)
  Receive Date: 20120228
  Receipt Date: 20150310
  Transmission Date: 20150721
  Serious: Yes (Death, Other)
  Sender: FDA-Public Use
  Company Number: AU-PFIZER INC-2012045958

PATIENT
  Age: 27 Year
  Sex: Male
  Weight: 72 kg

DRUGS (6)
  1. DIAZEPAM. [Interacting]
     Active Substance: DIAZEPAM
     Dosage: UNK
  2. PRISTIQ EXTENDED RELEASE [Suspect]
     Active Substance: DESVENLAFAXINE SUCCINATE
     Indication: DEPRESSION
     Dosage: 200 MG, 1X/DAY
     Route: 048
     Dates: start: 20100803, end: 20101008
  3. METOCLOPRAMIDE. [Concomitant]
     Active Substance: METOCLOPRAMIDE
     Dosage: UNK
  4. MIRTAZAPINE. [Interacting]
     Active Substance: MIRTAZAPINE
     Indication: DEPRESSION
     Dosage: 30 MG, 1X/DAY
     Route: 048
     Dates: start: 20100830, end: 20101011
  5. ALPRAZOLAM. [Concomitant]
     Active Substance: ALPRAZOLAM
     Dosage: UNK
  6. OXYCODONE [Concomitant]
     Active Substance: OXYCODONE
     Dosage: UNK

REACTIONS (20)
  - Bronchopneumonia [Fatal]
  - Overdose [Fatal]
  - Impaired driving ability [Unknown]
  - Abnormal behaviour [Unknown]
  - Agitation [Unknown]
  - Aggression [Unknown]
  - Personality change [Unknown]
  - Completed suicide [Fatal]
  - Bipolar disorder [Unknown]
  - Victim of crime [Unknown]
  - Drug interaction [Unknown]
  - Fatigue [Unknown]
  - Head injury [Unknown]
  - Depression [Unknown]
  - Insomnia [Unknown]
  - Impulsive behaviour [Unknown]
  - Swelling face [Unknown]
  - Social avoidant behaviour [Unknown]
  - Pain in jaw [Unknown]
  - Drug withdrawal syndrome [Unknown]

NARRATIVE: CASE EVENT DATE: 20101010
